FAERS Safety Report 6749194-3 (Version None)
Quarter: 2010Q2

REPORT INFORMATION
  Report Type: 
  Country: None (occurrence: None)
  Receive Date: 20100601
  Receipt Date: 20100526
  Transmission Date: 20101027
  Serious: Yes (Hospitalization, Other)
  Sender: FDA-Public Use
  Company Number: ES-ROXANE LABORATORIES, INC.-2010-DE-02562GD

PATIENT
  Sex: Female

DRUGS (6)
  1. CODEINE SULFATE [Suspect]
     Dates: start: 20060101
  2. ACETAMINOPHEN W/ CODEINE [Suspect]
     Dosage: 28 ANZ
     Route: 048
  3. CITALOPRAM HYDROBROMIDE [Concomitant]
  4. GABAPENTIN [Concomitant]
  5. CLONAZEPAM [Concomitant]
  6. DIAZEPAM [Concomitant]

REACTIONS (4)
  - DRUG ABUSE [None]
  - DRUG DEPENDENCE [None]
  - DRUG WITHDRAWAL SYNDROME [None]
  - SUICIDE ATTEMPT [None]
